FAERS Safety Report 9094602 (Version 3)
Quarter: 2013Q4

REPORT INFORMATION
  Report Type: Spontaneous
  Country: CA (occurrence: CA)
  Receive Date: 20130220
  Receipt Date: 20131122
  Transmission Date: 20140711
  Serious: Yes (Other)
  Sender: FDA-Public Use
  Company Number: CA-AMGEN-CANSP2013010499

PATIENT
  Age: 72 Year
  Sex: Female
  Weight: 65.76 kg

DRUGS (5)
  1. PROLIA [Suspect]
     Indication: OSTEOPOROSIS
     Dosage: 60 MG, Q6MO
     Route: 058
     Dates: start: 201111, end: 201302
  2. ACTONEL [Suspect]
     Indication: OSTEOPOROSIS
     Dosage: 35 MG, QWK
     Route: 048
  3. FOSAMAX [Suspect]
     Indication: OSTEOPOROSIS
     Dosage: 70 MG, QWK
     Route: 048
  4. CALCIUM + VIT D [Concomitant]
     Indication: OSTEOPOROSIS
     Dosage: UNK UNK, BID
     Route: 048
     Dates: start: 2010
  5. SYNTHROID [Concomitant]
     Indication: HYPOTHYROIDISM
     Dosage: 50 MG, BID
     Route: 048

REACTIONS (3)
  - Stress fracture [Not Recovered/Not Resolved]
  - Pain in extremity [Not Recovered/Not Resolved]
  - Atypical femur fracture [Not Recovered/Not Resolved]
